FAERS Safety Report 23588839 (Version 2)
Quarter: 2025Q3

REPORT INFORMATION
  Report Type: Report from Study
  Country: CA (occurrence: CA)
  Receive Date: 20240303
  Receipt Date: 20250923
  Transmission Date: 20251020
  Serious: Yes (Hospitalization, Other)
  Sender: AUROBINDO
  Company Number: CA-AUROBINDO-AUR-APL-2024-010453

PATIENT
  Age: 89 Year
  Sex: Female

DRUGS (2)
  1. APIXABAN [Suspect]
     Active Substance: APIXABAN
     Indication: Atrial fibrillation
     Dosage: 5 MILLIGRAM, TWO TIMES A DAY
     Route: 048
  2. APIXABAN [Suspect]
     Active Substance: APIXABAN
     Indication: Anticoagulant therapy
     Route: 048

REACTIONS (7)
  - Upper gastrointestinal haemorrhage [Unknown]
  - Melaena [Unknown]
  - Haematemesis [Unknown]
  - Lethargy [Unknown]
  - Back pain [Unknown]
  - Gastrointestinal disorder [Unknown]
  - Therapy interrupted [Unknown]
